FAERS Safety Report 10812135 (Version 1)
Quarter: 2015Q1

REPORT INFORMATION
  Report Type: Spontaneous
  Country: FR (occurrence: None)
  Receive Date: 20150212
  Receipt Date: 20150212
  Transmission Date: 20150721
  Serious: Yes (Life-Threatening, Hospitalization)
  Sender: FDA-Public Use
  Company Number: 8008458

PATIENT
  Age: 61 Year
  Sex: Female

DRUGS (5)
  1. LEVOTHYROX 75 (LEVOTHYROXINE SODIUM) [Suspect]
     Active Substance: LEVOTHYROXINE SODIUM
     Indication: SUICIDE ATTEMPT
     Route: 048
     Dates: start: 20140624, end: 20140624
  2. VENLAFAXINE [Suspect]
     Active Substance: VENLAFAXINE HYDROCHLORIDE
     Indication: SUICIDE ATTEMPT
     Dosage: 3 DF (1 DF,3 IN 1 D)
     Route: 048
     Dates: start: 20140624, end: 20140624
  3. PARACETAMOL (PARACETAMOL) (PARACETAMOL) [Suspect]
     Active Substance: ACETAMINOPHEN
     Indication: SUICIDE ATTEMPT
     Dosage: 3 GM (1 GM,3 IN 1 D)
     Route: 048
     Dates: start: 20140624, end: 20140624
  4. DEPAMIDE (VALPROMIDE) [Suspect]
     Active Substance: VALPROMIDE
     Indication: SUICIDE ATTEMPT
     Dosage: 2 DF (1 DF, 2 IN 1 D)
     Route: 048
     Dates: start: 20140624, end: 20140624
  5. BROMAZEPAM (BROMAZEPAM) [Suspect]
     Active Substance: BROMAZEPAM
     Indication: SUICIDE ATTEMPT
     Dosage: 1.5 DF (0.5 DF,3 IN 1 D)
     Route: 048
     Dates: start: 20140624, end: 20140624

REACTIONS (11)
  - Exposure via inhalation [None]
  - Miosis [None]
  - Acute respiratory distress syndrome [None]
  - Pneumonia aspiration [None]
  - Foreign body aspiration [None]
  - Somnolence [None]
  - Vomiting [None]
  - Intentional overdose [None]
  - Toxicity to various agents [None]
  - Respiratory failure [None]
  - Haemodynamic instability [None]

NARRATIVE: CASE EVENT DATE: 20140624
